FAERS Safety Report 23733576 (Version 1)
Quarter: 2024Q2

REPORT INFORMATION
  Report Type: Spontaneous
  Country: JP (occurrence: JP)
  Receive Date: 20240411
  Receipt Date: 20240411
  Transmission Date: 20240716
  Serious: Yes (Other)
  Sender: FDA-Public Use
  Company Number: JP-NEUROCRINE BIOSCIENCES INC.-2024NBI03438

PATIENT
  Sex: Female

DRUGS (1)
  1. VALBENAZINE [Suspect]
     Active Substance: VALBENAZINE
     Indication: Product used for unknown indication
     Dosage: 40 MILLIGRAM, QD
     Route: 048

REACTIONS (10)
  - Feeding disorder [Unknown]
  - Dementia with Lewy bodies [Unknown]
  - Eye disorder [Unknown]
  - Pyrexia [Unknown]
  - Foot fracture [Unknown]
  - Foot deformity [Unknown]
  - Hypersomnia [Unknown]
  - Constipation [Unknown]
  - Somnolence [Unknown]
  - Drooling [Unknown]
